FAERS Safety Report 20385798 (Version 1)
Quarter: 2022Q1

REPORT INFORMATION
  Report Type: Spontaneous
  Country: US (occurrence: US)
  Receive Date: 20220127
  Receipt Date: 20220127
  Transmission Date: 20220423
  Serious: No
  Sender: FDA-Public Use
  Company Number: US-ALLERGAN-2116755US

PATIENT
  Sex: Male
  Weight: 3.43 kg

DRUGS (2)
  1. BOTOX [Suspect]
     Active Substance: ONABOTULINUMTOXINA
     Indication: Exposure during pregnancy
     Dosage: UNK UNK, SINGLE
  2. Prenatal multivitamin [Concomitant]
     Indication: Supplementation therapy

REACTIONS (3)
  - Foetal heart rate deceleration abnormality [Unknown]
  - Foetal malposition [Unknown]
  - Pregnancy [Unknown]
